FAERS Safety Report 6179700-1 (Version None)
Quarter: 2009Q2

REPORT INFORMATION
  Report Type: 
  Country: None (occurrence: None)
  Receive Date: 20090505
  Receipt Date: 20090423
  Transmission Date: 20091009
  Serious: Yes (Death)
  Sender: FDA-Public Use
  Company Number: US-WYE-H08745709

PATIENT
  Sex: Male

DRUGS (5)
  1. PRISTIQ [Suspect]
     Dosage: OVERDOSE AMOUNT UNKNOWN
     Dates: start: 20090219, end: 20090219
  2. TEMAZEPAM [Concomitant]
     Indication: INSOMNIA
     Dates: start: 20080101, end: 20090101
  3. CLONAZEPAM [Concomitant]
     Indication: ANXIETY
     Dates: start: 20080101, end: 20090101
  4. CYMBALTA [Suspect]
     Dates: end: 20090128
  5. CYMBALTA [Suspect]
     Dosage: TAPERING DOSE
     Dates: start: 20090129, end: 20090206

REACTIONS (2)
  - COMPLETED SUICIDE [None]
  - INTENTIONAL OVERDOSE [None]
